FAERS Safety Report 7038225-1 (Version None)
Quarter: 2010Q4

REPORT INFORMATION
  Report Type: 
  Country: None (occurrence: None)
  Receive Date: 20101011
  Receipt Date: 20091201
  Transmission Date: 20110411
  Serious: No
  Sender: FDA-Public Use
  Company Number: US-PFIZER INC-2009272867

PATIENT
  Age: 77 Year
  Sex: Female
  Weight: 30.839 kg

DRUGS (1)
  1. NEURONTIN [Suspect]

REACTIONS (5)
  - DEPRESSION [None]
  - HEADACHE [None]
  - HYPERVENTILATION [None]
  - INSOMNIA [None]
  - MALAISE [None]
